FAERS Safety Report 9553773 (Version 1)
Quarter: 2013Q3

REPORT INFORMATION
  Report Type: Spontaneous
  Country: FR (occurrence: FR)
  Receive Date: 20130925
  Receipt Date: 20130925
  Transmission Date: 20140515
  Serious: Yes (Life-Threatening, Hospitalization)
  Sender: FDA-Public Use
  Company Number: PHHY2013FR106670

PATIENT
  Age: 67 Year
  Sex: Male
  Weight: 107 kg

DRUGS (4)
  1. VOLTARENE LP [Suspect]
     Dosage: 100 MG, QD
     Route: 048
     Dates: end: 20130707
  2. ALDACTONE [Suspect]
     Indication: HYPERTENSION
     Dosage: 50 MG, QD
     Route: 048
     Dates: start: 201303, end: 20130707
  3. OLMETEC [Suspect]
     Dosage: (40 MG/10 MG), QD
     Route: 048
     Dates: end: 20130707
  4. ATORVASTATIN [Suspect]
     Dosage: UNK UKN, UNK
     Route: 048
     Dates: end: 20130705

REACTIONS (1)
  - Hyperkalaemia [Recovered/Resolved]
